FAERS Safety Report 23102342 (Version 8)
Quarter: 2024Q4

REPORT INFORMATION
  Report Type: Spontaneous
  Country: PL (occurrence: PL)
  Receive Date: 20231025
  Receipt Date: 20241224
  Transmission Date: 20250114
  Serious: Yes (Hospitalization, Other)
  Sender: AUROBINDO
  Company Number: PL-CHEPLA-2023012768

PATIENT
  Age: 29 Year
  Sex: Male

DRUGS (17)
  1. ACETAMINOPHEN [Interacting]
     Active Substance: ACETAMINOPHEN
     Indication: Headache
     Dosage: 4000 MILLIGRAM, ONCE A DAY
     Route: 048
  2. ACETAMINOPHEN [Interacting]
     Active Substance: ACETAMINOPHEN
     Indication: Analgesic therapy
  3. SERTRALINE [Interacting]
     Active Substance: SERTRALINE HYDROCHLORIDE
     Indication: Depression
     Dosage: 100 MILLIGRAM, ONCE A DAY
     Route: 065
  4. BUPROPION HYDROCHLORIDE\NALTREXONE HYDROCHLORIDE [Interacting]
     Active Substance: BUPROPION HYDROCHLORIDE\NALTREXONE HYDROCHLORIDE
     Indication: Obesity
     Dosage: 2 DOSAGE FORM
     Route: 065
  5. BUPROPION HYDROCHLORIDE\NALTREXONE HYDROCHLORIDE [Interacting]
     Active Substance: BUPROPION HYDROCHLORIDE\NALTREXONE HYDROCHLORIDE
     Dosage: 1 DOSAGE FORM, ONCE A DAY (FOR 2 WEEKS)
     Route: 065
  6. BUPROPION HYDROCHLORIDE\NALTREXONE HYDROCHLORIDE [Interacting]
     Active Substance: BUPROPION HYDROCHLORIDE\NALTREXONE HYDROCHLORIDE
     Dosage: 4 DOSAGE FORM, ONCE A DAY (EVERY 2WEEK)
     Route: 065
  7. BUPROPION HYDROCHLORIDE\NALTREXONE HYDROCHLORIDE [Interacting]
     Active Substance: BUPROPION HYDROCHLORIDE\NALTREXONE HYDROCHLORIDE
     Dosage: 1 DOSAGE FORM, EVERY WEEK
     Route: 065
  8. OMEPRAZOLE SODIUM [Interacting]
     Active Substance: OMEPRAZOLE SODIUM
     Indication: Gastrooesophageal reflux disease
     Dosage: 40 MILLIGRAM, ONCE A DAY
     Route: 048
  9. OMEPRAZOLE SODIUM [Interacting]
     Active Substance: OMEPRAZOLE SODIUM
     Indication: Oesophageal pain
  10. OMEPRAZOLE SODIUM [Interacting]
     Active Substance: OMEPRAZOLE SODIUM
     Indication: Dyspepsia
  11. OMEPRAZOLE SODIUM [Interacting]
     Active Substance: OMEPRAZOLE SODIUM
     Indication: Eructation
  12. OZEMPIC [Interacting]
     Active Substance: SEMAGLUTIDE
     Indication: Obesity
     Dosage: 0.25 MILLIGRAM, EVERY WEEK (FOR THE FIRST 2 WEEKS0
     Route: 058
  13. OZEMPIC [Interacting]
     Active Substance: SEMAGLUTIDE
     Dosage: 1 MILLIGRAM, EVERY WEEK
     Route: 058
  14. ACETAMINOPHEN [Suspect]
     Active Substance: ACETAMINOPHEN
     Indication: Analgesic therapy
     Dosage: 4000 MILLIGRAM
     Route: 048
  15. ACETAMINOPHEN [Suspect]
     Active Substance: ACETAMINOPHEN
     Indication: Headache
  16. BUPROPION [Suspect]
     Active Substance: BUPROPION
     Indication: Obesity
     Dosage: 1 DOSAGE FORM, ONCE A DAY(90 MG/8 MG)
     Route: 048
  17. BUPROPION [Suspect]
     Active Substance: BUPROPION
     Dosage: 4 DOSAGE FORM, ONCE A DAY(90 MG/8 MG)
     Route: 048

REACTIONS (22)
  - Oedematous pancreatitis [Recovered/Resolved]
  - Pancreatitis [Recovered/Resolved]
  - Drug interaction [Recovered/Resolved]
  - Abdominal pain upper [Recovered/Resolved]
  - Pyrexia [Recovered/Resolved]
  - Gastrooesophageal reflux disease [Recovered/Resolved]
  - Nausea [Recovered/Resolved]
  - Pancreatic enlargement [Recovered/Resolved]
  - Burn oesophageal [Recovered/Resolved]
  - Gastrointestinal oedema [Recovered/Resolved]
  - Hypopnoea [Recovered/Resolved]
  - Abdominal distension [Recovered/Resolved]
  - Headache [Recovered/Resolved]
  - Flatulence [Recovered/Resolved]
  - Respiratory rate increased [Recovered/Resolved]
  - Product administration error [Unknown]
  - Abdominal wall disorder [Recovered/Resolved]
  - Pain [Recovered/Resolved]
  - Dyspepsia [Recovered/Resolved]
  - Drug titration error [Unknown]
  - Product use in unapproved indication [Unknown]
  - Contraindicated product administered [Unknown]
